FAERS Safety Report 23739434 (Version 1)
Quarter: 2024Q2

REPORT INFORMATION
  Report Type: Spontaneous
  Country: FR (occurrence: FR)
  Receive Date: 20240413
  Receipt Date: 20240413
  Transmission Date: 20240715
  Serious: Yes (Other)
  Sender: FDA-Public Use
  Company Number: None

PATIENT
  Age: 21 Year
  Sex: Female

DRUGS (2)
  1. ALPRAZOLAM [Suspect]
     Active Substance: ALPRAZOLAM
     Indication: Product used for unknown indication
     Route: 048
     Dates: start: 2022, end: 2022
  2. TOPLEXIL (OXOMEMAZINE) [Suspect]
     Active Substance: OXOMEMAZINE
     Indication: Product used for unknown indication
     Route: 048
     Dates: start: 2022, end: 2022

REACTIONS (2)
  - Drug use disorder [Recovered/Resolved]
  - Sedation [Recovered/Resolved]

NARRATIVE: CASE EVENT DATE: 20220101
